FAERS Safety Report 7182983-2 (Version None)
Quarter: 2010Q4

REPORT INFORMATION
  Report Type: 
  Country: None (occurrence: None)
  Receive Date: 20101222
  Receipt Date: 20101115
  Transmission Date: 20110411
  Serious: Yes (Other)
  Sender: FDA-Public Use
  Company Number: US-GENZYME-CERZ-1001642

PATIENT

DRUGS (1)
  1. CEREZYME [Suspect]
     Indication: GAUCHER'S DISEASE
     Route: 042

REACTIONS (6)
  - ASTHENIA [None]
  - B PRECURSOR TYPE ACUTE LEUKAEMIA [None]
  - FATIGUE [None]
  - HEPATOMEGALY [None]
  - SPLENOMEGALY [None]
  - WEIGHT DECREASED [None]
